FAERS Safety Report 14343449 (Version 1)
Quarter: 2018Q1

REPORT INFORMATION
  Report Type: Spontaneous
  Country: HR (occurrence: HR)
  Receive Date: 20180102
  Receipt Date: 20180102
  Transmission Date: 20180509
  Serious: Yes (Other)
  Sender: FDA-Public Use
  Company Number: HR-PFIZER INC-2017555820

PATIENT
  Sex: Female

DRUGS (2)
  1. AZOLAR [Suspect]
     Active Substance: ARIPIPRAZOLE
     Dosage: ONCE
     Route: 048
     Dates: start: 20171022, end: 20171022
  2. XANAX [Suspect]
     Active Substance: ALPRAZOLAM
     Dosage: ONCE
     Route: 048
     Dates: start: 20171022, end: 20171022

REACTIONS (3)
  - Somnolence [Unknown]
  - Suicide attempt [Unknown]
  - Bradycardia [Unknown]

NARRATIVE: CASE EVENT DATE: 20171022
